FAERS Safety Report 15190821 (Version 2)
Quarter: 2018Q3

REPORT INFORMATION
  Report Type: Spontaneous
  Country: US (occurrence: US)
  Receive Date: 20180724
  Receipt Date: 20180803
  Transmission Date: 20181010
  Serious: Yes (Life-Threatening, Other)
  Sender: FDA-Public Use
  Company Number: US-TEVA-2018-US-930480

PATIENT
  Age: 3 Decade
  Sex: Male

DRUGS (6)
  1. MORPHINE [Suspect]
     Active Substance: MORPHINE
     Indication: HEADACHE
     Dosage: 20 TABLETS OF 5MG MORPHINE INTENDED FOR TWO WEEKS; CONSUMED WITHIN FOUR DAYS.
     Route: 048
  2. IBUPROFEN. [Concomitant]
     Active Substance: IBUPROFEN
     Indication: HEADACHE
     Dosage: 400?800MG DAILY
     Route: 065
  3. CLONIDINE. [Concomitant]
     Active Substance: CLONIDINE
     Indication: DETOXIFICATION
     Route: 065
  4. NALTREXONE [Concomitant]
     Active Substance: NALTREXONE
     Indication: DETOXIFICATION
     Route: 065
  5. FENTANYL. [Suspect]
     Active Substance: FENTANYL
     Route: 042
  6. MORPHINE [Suspect]
     Active Substance: MORPHINE
     Indication: HEADACHE
     Dosage: MORPHINE 5MG 6?WEEK SUPPLY; CONSUMED WITHIN 3 WEEKS
     Route: 048

REACTIONS (7)
  - Drug dependence [Recovering/Resolving]
  - Drug withdrawal syndrome [Recovering/Resolving]
  - Respiratory arrest [Recovered/Resolved]
  - Overdose [Recovered/Resolved]
  - Intentional product misuse [Recovered/Resolved]
  - Drug use disorder [Recovering/Resolving]
  - Drug abuse [Recovering/Resolving]
